FAERS Safety Report 5042237-7 (Version None)
Quarter: 2006Q2

REPORT INFORMATION
  Report Type: 
  Country: None (occurrence: None)
  Receive Date: 20060623
  Receipt Date: 20060619
  Transmission Date: 20061013
  Serious: Yes (Hospitalization)
  Sender: FDA-Public Use
  Company Number: B0428008A

PATIENT
  Age: 21 Year
  Sex: Male

DRUGS (5)
  1. ADVAIR UNSPECIFIED INHALER DEVICE (FLUTICASONE+SALMETEROL) [Suspect]
     Indication: ASTHMA
     Dosage: FOUR TIMES PER DAY / INHALE
     Route: 055
  2. SALBUTAMOL SULPHATE [Concomitant]
  3. ANTIBIOTICS [Concomitant]
  4. NSAID [Concomitant]
  5. CORTICOSTEROID [Concomitant]

REACTIONS (3)
  - BRONCHOPULMONARY ASPERGILLOSIS [None]
  - HAEMOPTYSIS [None]
  - NECROSIS [None]
